FAERS Safety Report 7349755-7 (Version None)
Quarter: 2011Q1

REPORT INFORMATION
  Report Type: 
  Country: None (occurrence: None)
  Receive Date: 20110309
  Receipt Date: 20110309
  Transmission Date: 20110831
  Serious: Yes (Hospitalization)
  Sender: FDA-Public Use
  Company Number: None

PATIENT
  Age: 89 Year
  Sex: Male

DRUGS (1)
  1. BUMETANIDE [Suspect]
     Indication: HYPERTENSION
     Dates: start: 20101223, end: 20110105

REACTIONS (5)
  - HYPOKALAEMIA [None]
  - WEIGHT DECREASED [None]
  - BLOOD UREA INCREASED [None]
  - BLOOD CREATININE INCREASED [None]
  - DEHYDRATION [None]
